FAERS Safety Report 23255924 (Version 1)
Quarter: 2023Q4

REPORT INFORMATION
  Report Type: Spontaneous
  Country: MY (occurrence: MY)
  Receive Date: 20231204
  Receipt Date: 20231204
  Transmission Date: 20240109
  Serious: Yes (Hospitalization, Other)
  Sender: FDA-Public Use
  Company Number: MY-STRIDES ARCOLAB LIMITED-2023SP017829

PATIENT
  Age: 17 Year
  Sex: Female

DRUGS (3)
  1. CALCITONIN [Suspect]
     Active Substance: CALCITONIN
     Indication: Hypercalcaemia
     Dosage: UNK
     Route: 065
  2. CINACALCET [Suspect]
     Active Substance: CINACALCET
     Indication: Hypercalcaemia
     Dosage: 75 MILLIGRAM/DAY
     Route: 065
  3. SALINE [Suspect]
     Active Substance: SODIUM CHLORIDE
     Indication: Hypercalcaemia
     Dosage: UNK (3-3.5 L)/DAY
     Route: 042

REACTIONS (4)
  - Premature delivery [Unknown]
  - Rebound effect [Unknown]
  - Maternal exposure during pregnancy [Unknown]
  - Treatment noncompliance [Unknown]
